FAERS Safety Report 12967643 (Version 1)
Quarter: 2016Q4

REPORT INFORMATION
  Report Type: Other
  Country: ES (occurrence: ES)
  Receive Date: 20161118
  Receipt Date: 20161118
  Transmission Date: 20170207
  Serious: Yes (Hospitalization)
  Sender: FDA-Public Use
  Company Number: ES--2016-ES-000005

PATIENT
  Age: 61 Year
  Sex: Female

DRUGS (2)
  1. LOSARTAN POTASSIUM TABLETS USP, 100 MG (VIVIMED) [Suspect]
     Active Substance: LOSARTAN POTASSIUM
     Indication: BLOOD PRESSURE INADEQUATELY CONTROLLED
     Dosage: 100 MG PER DAY
     Dates: start: 201303
  2. LOSARTAN POTASSIUM TABLETS USP, 50 MG (VIVIMED) [Suspect]
     Active Substance: LOSARTAN POTASSIUM
     Indication: HYPERTENSION
     Dosage: 50MG PER DAY
     Dates: start: 201211

REACTIONS (2)
  - Blood pressure inadequately controlled [Unknown]
  - Pancreatitis acute [Recovered/Resolved]

NARRATIVE: CASE EVENT DATE: 2013
